FAERS Safety Report 8298390-5 (Version None)
Quarter: 2012Q2

REPORT INFORMATION
  Report Type: 
  Country: None (occurrence: None)
  Receive Date: 20120419
  Receipt Date: 20120413
  Transmission Date: 20120825
  Serious: Yes (Other)
  Sender: FDA-Public Use
  Company Number: US-ROCHE-1059667

PATIENT

DRUGS (1)
  1. HERCEPTIN [Suspect]
     Indication: GASTRIC CANCER

REACTIONS (1)
  - PNEUMOTHORAX [None]
